FAERS Safety Report 7318697-5 (Version None)
Quarter: 2011Q1

REPORT INFORMATION
  Report Type: 
  Country: None (occurrence: None)
  Receive Date: 20110228
  Receipt Date: 20110215
  Transmission Date: 20110831
  Serious: No
  Sender: FDA-Public Use
  Company Number: US-ROXANE LABORATORIES, INC.-2011-RO-00192RO

PATIENT
  Sex: Female
  Weight: 59 kg

DRUGS (2)
  1. PREDNISONE [Suspect]
     Indication: POLYMYALGIA RHEUMATICA
     Route: 048
     Dates: start: 20030101, end: 20090101
  2. METHOTREXATE [Suspect]
     Dates: start: 20030101, end: 20060101

REACTIONS (7)
  - FALL [None]
  - EYE DISORDER [None]
  - MALAISE [None]
  - DIZZINESS [None]
  - BLOOD PRESSURE INCREASED [None]
  - ASTHENIA [None]
  - LOSS OF CONSCIOUSNESS [None]
